FAERS Safety Report 10045381 (Version 2)
Quarter: 2014Q2

REPORT INFORMATION
  Report Type: Report from Study
  Country: JP (occurrence: JP)
  Receive Date: 20140328
  Receipt Date: 20140523
  Transmission Date: 20141212
  Serious: Yes (Other)
  Sender: FDA-Public Use
  Company Number: JP-OTSUKA-JP-2014-12773

PATIENT
  Sex: Male
  Weight: 62 kg

DRUGS (12)
  1. SAMSCA [Suspect]
     Indication: OEDEMA DUE TO CARDIAC DISEASE
     Dosage: 7.5 MG MILLIGRAM(S), QAM
     Route: 048
     Dates: start: 20140120, end: 20140121
  2. SAMSCA [Suspect]
     Dosage: 15 MG MILLIGRAM(S), QAM
     Route: 048
     Dates: start: 20140122, end: 20140125
  3. DIART [Concomitant]
     Indication: CARDIAC FAILURE
     Dosage: 60 MG MILLIGRAM(S), DAILY DOSE
     Route: 048
  4. LIPITOR [Concomitant]
     Dosage: 10 MG MILLIGRAM(S), DAILY DOSE
     Route: 048
  5. MERCAZOLE [Concomitant]
     Dosage: 30 MG MILLIGRAM(S), DAILY DOSE
     Route: 048
  6. TRAZENTA [Concomitant]
     Dosage: 5 MG MILLIGRAM(S), DAILY DOSE
     Route: 048
  7. BAYASPIRIN [Concomitant]
     Dosage: 100 MG MILLIGRAM(S), DAILY DOSE
     Route: 048
  8. BLOPRESS [Concomitant]
     Dosage: 8 MG MILLIGRAM(S), DAILY DOSE
     Route: 048
  9. LASIX [Concomitant]
     Indication: CARDIAC FAILURE
     Dosage: 40 MG MILLIGRAM(S), DAILY DOSE
     Route: 048
  10. ADALAT CR [Concomitant]
     Dosage: 20 MG MILLIGRAM(S), DAILY DOSE
     Route: 048
  11. KREMEZIN [Concomitant]
     Dosage: 6 G GRAM(S), DAILY DOSE
     Route: 048
  12. FEBURIC [Concomitant]
     Dosage: 20 MG MILLIGRAM(S), DAILY DOSE
     Route: 048
     Dates: start: 20140121

REACTIONS (2)
  - Blood creatinine increased [Unknown]
  - Blood urea increased [Unknown]
